FAERS Safety Report 5945502-1 (Version None)
Quarter: 2008Q4

REPORT INFORMATION
  Report Type: 
  Country: None (occurrence: None)
  Receive Date: 20081105
  Receipt Date: 20081028
  Transmission Date: 20090506
  Serious: Yes (Hospitalization)
  Sender: FDA-Public Use
  Company Number: CIP08001731

PATIENT
  Age: 85 Year
  Sex: Female

DRUGS (12)
  1. ACTONEL [Suspect]
     Indication: OSTEOPOROSIS
     Dosage: 35 MG ONCE WEEKLY, ORAL
     Route: 048
     Dates: end: 20080901
  2. BUPRENORPHINE HCL [Concomitant]
  3. AMLODIPINE [Concomitant]
  4. CALCIUM CARBONATE (CALCIUM CARBONATE) [Concomitant]
  5. DOMPERIDONE (DOMPERIDONE) [Concomitant]
  6. ESOMEPRAZOLE MAGNESIUM [Concomitant]
  7. GLICICLAZIDE (GLICICLAZIDE) [Concomitant]
  8. LORATADINE [Concomitant]
  9. METFORMIN HCL [Concomitant]
  10. RAMIPRIL [Concomitant]
  11. SULFASALAZINE [Concomitant]
  12. LEVOTHYROXINE SODIUM [Concomitant]

REACTIONS (1)
  - STRESS FRACTURE [None]
